FAERS Safety Report 25213134 (Version 1)
Quarter: 2025Q2

REPORT INFORMATION
  Report Type: Spontaneous
  Country: FR (occurrence: FR)
  Receive Date: 20250418
  Receipt Date: 20250418
  Transmission Date: 20250716
  Serious: Yes (Hospitalization, Other)
  Sender: PFIZER
  Company Number: None

PATIENT
  Age: 46 Year
  Sex: Male

DRUGS (2)
  1. SULFASALAZINE [Suspect]
     Active Substance: SULFASALAZINE
     Dosage: 1500 MG, 1X/DAY
     Route: 048
     Dates: start: 20250318, end: 20250319
  2. SULFADIAZINE [Concomitant]
     Active Substance: SULFADIAZINE
     Dosage: 1500 MG, 1X/DAY

REACTIONS (2)
  - Renal failure [Recovering/Resolving]
  - Product name confusion [Unknown]

NARRATIVE: CASE EVENT DATE: 20250318
